FAERS Safety Report 16115422 (Version 1)
Quarter: 2019Q1

REPORT INFORMATION
  Report Type: Spontaneous
  Country: FR (occurrence: FR)
  Receive Date: 20190325
  Receipt Date: 20190325
  Transmission Date: 20190418
  Serious: Yes (Hospitalization)
  Sender: FDA-Public Use
  Company Number: PHHY2019FR063741

PATIENT
  Age: 14 Year
  Sex: Female
  Weight: 58 kg

DRUGS (2)
  1. NORDAZ [Suspect]
     Active Substance: NORDAZEPAM
     Indication: POISONING DELIBERATE
     Dosage: 15 DF, TOTAL
     Route: 048
     Dates: start: 20190222, end: 20190222
  2. PARACETAMOL [Suspect]
     Active Substance: ACETAMINOPHEN
     Indication: POISONING DELIBERATE
     Dosage: 4000 MG, UNK
     Route: 048
     Dates: start: 20190222, end: 20190222

REACTIONS (2)
  - Bradyphrenia [Recovering/Resolving]
  - Psychomotor skills impaired [Recovering/Resolving]

NARRATIVE: CASE EVENT DATE: 20190222
